FAERS Safety Report 9854688 (Version 1)
Quarter: 2014Q1

REPORT INFORMATION
  Report Type: Spontaneous
  Country: US (occurrence: US)
  Receive Date: 20140130
  Receipt Date: 20140130
  Transmission Date: 20141002
  Serious: Yes (Other)
  Sender: FDA-Public Use
  Company Number: US-BRISTOL-MYERS SQUIBB COMPANY-20071288

PATIENT
  Sex: Male

DRUGS (1)
  1. BARACLUDE [Suspect]
     Dosage: 2.5 YEARS

REACTIONS (5)
  - Arthralgia [Unknown]
  - Rash [Not Recovered/Not Resolved]
  - Thyroid disorder [Recovering/Resolving]
  - Gastrointestinal disorder [Recovering/Resolving]
  - Back pain [Unknown]
